FAERS Safety Report 23721962 (Version 4)
Quarter: 2024Q4

REPORT INFORMATION
  Report Type: Spontaneous
  Country: US (occurrence: US)
  Receive Date: 20240409
  Receipt Date: 20241022
  Transmission Date: 20250115
  Serious: No
  Sender: BRISTOL-MYERS SQUIBB COMPANY
  Company Number: US-BRISTOL-MYERS SQUIBB COMPANY-2024-055494

PATIENT
  Age: 78 Year
  Sex: Female

DRUGS (4)
  1. ORENCIA [Suspect]
     Active Substance: ABATACEPT
     Indication: Rheumatoid arthritis
     Route: 058
     Dates: start: 202403
  2. ORENCIA [Suspect]
     Active Substance: ABATACEPT
     Route: 058
     Dates: start: 202403
  3. ORENCIA [Suspect]
     Active Substance: ABATACEPT
     Route: 058
     Dates: start: 202403
  4. ORENCIA [Suspect]
     Active Substance: ABATACEPT
     Dosage: DOSE: 125MG/ML
     Route: 058
     Dates: start: 202403

REACTIONS (4)
  - General physical health deterioration [Unknown]
  - Gait disturbance [Unknown]
  - Pain [Unknown]
  - Fluid retention [Unknown]
